FAERS Safety Report 7578225-6 (Version None)
Quarter: 2011Q2

REPORT INFORMATION
  Report Type: 
  Country: None (occurrence: None)
  Receive Date: 20110628
  Receipt Date: 20110620
  Transmission Date: 20111010
  Serious: Yes (Hospitalization)
  Sender: FDA-Public Use
  Company Number: B0728150A

PATIENT
  Sex: Female

DRUGS (2)
  1. ZOFRAN [Suspect]
     Indication: VOMITING
     Route: 065
  2. ONDANSETRON HYDROCHLORIDE [Suspect]
     Indication: NAUSEA
     Route: 065

REACTIONS (5)
  - DRUG EXPOSURE DURING PREGNANCY [None]
  - NAUSEA [None]
  - DRUG INEFFECTIVE [None]
  - VOMITING [None]
  - DEHYDRATION [None]
